FAERS Safety Report 4651078-1 (Version None)
Quarter: 2005Q2

REPORT INFORMATION
  Report Type: 
  Country: None (occurrence: None)
  Receive Date: 20050503
  Receipt Date: 20050427
  Transmission Date: 20051028
  Serious: Yes (Other)
  Sender: FDA-Public Use
  Company Number: PHBS2005IN06168

PATIENT
  Age: 37 Year
  Sex: Male

DRUGS (1)
  1. DIOVAN [Suspect]
     Dosage: 20 MG, QD
     Route: 048

REACTIONS (3)
  - FEELING ABNORMAL [None]
  - HYPOAESTHESIA [None]
  - PARAESTHESIA [None]
